FAERS Safety Report 10441096 (Version 1)
Quarter: 2014Q3

REPORT INFORMATION
  Report Type: Spontaneous
  Country: US (occurrence: US)
  Receive Date: 20140909
  Receipt Date: 20140909
  Transmission Date: 20150326
  Serious: Yes (Other)
  Sender: FDA-Public Use
  Company Number: US-ELI_LILLY_AND_COMPANY-US201409000597

PATIENT
  Sex: Female

DRUGS (3)
  1. LIPITOR [Concomitant]
     Active Substance: ATORVASTATIN CALCIUM
  2. HUMALOG [Suspect]
     Active Substance: INSULIN LISPRO
     Indication: DIABETES MELLITUS
     Dosage: UNK UNK, PRN
     Route: 065
     Dates: start: 2004
  3. LANTUS [Concomitant]
     Active Substance: INSULIN GLARGINE

REACTIONS (4)
  - Renal impairment [Unknown]
  - Blood glucose increased [Unknown]
  - Visual acuity reduced [Unknown]
  - Drug dose omission [Unknown]
